FAERS Safety Report 9014520 (Version 1)
Quarter: 2013Q1

REPORT INFORMATION
  Report Type: Report from Study
  Country: CA (occurrence: CA)
  Receive Date: 20130115
  Receipt Date: 20130115
  Transmission Date: 20140127
  Serious: Yes (Other)
  Sender: FDA-Public Use
  Company Number: CA-JNJFOC-20130104162

PATIENT
  Age: 27 Year
  Sex: Female
  Weight: 116 kg

DRUGS (4)
  1. REMICADE [Suspect]
     Indication: PRODUCT USED FOR UNKNOWN INDICATION
     Route: 042
     Dates: start: 20110828
  2. AZATHIOPRINE [Concomitant]
     Route: 065
  3. CELEXA [Concomitant]
     Route: 065
  4. IMURAN [Concomitant]
     Route: 065

REACTIONS (1)
  - Eye pain [Recovered/Resolved]
